FAERS Safety Report 18599329 (Version 1)
Quarter: 2020Q4

REPORT INFORMATION
  Report Type: Spontaneous
  Country: DE (occurrence: DE)
  Receive Date: 20201210
  Receipt Date: 20201210
  Transmission Date: 20210114
  Serious: Yes (Other)
  Sender: FDA-Public Use
  Company Number: DE-TEVA-2020-DE-1857046

PATIENT
  Age: 59 Year
  Sex: Female
  Weight: 54 kg

DRUGS (2)
  1. PANTOPRAZOL-RATIOPHARM 40 MG MAGENSAFTRESISTENTE TABLETTEN [Suspect]
     Active Substance: PANTOPRAZOLE SODIUM
     Dosage: 20 MILLIGRAM DAILY;
     Route: 048
  2. PANTOPRAZOL-RATIOPHARM 40 MG MAGENSAFTRESISTENTE TABLETTEN [Suspect]
     Active Substance: PANTOPRAZOLE SODIUM
     Dosage: 10 MILLIGRAM DAILY; ON 2-3 DAYS
     Route: 048

REACTIONS (2)
  - Wrong technique in product usage process [Unknown]
  - Throat tightness [Unknown]
